FAERS Safety Report 8276720-8 (Version None)
Quarter: 2012Q2

REPORT INFORMATION
  Report Type: 
  Country: None (occurrence: None)
  Receive Date: 20120412
  Receipt Date: 20120412
  Transmission Date: 20120825
  Serious: No
  Sender: FDA-Public Use
  Company Number: None

PATIENT
  Age: 46 Year
  Sex: Female
  Weight: 90.718 kg

DRUGS (2)
  1. AMBIEN [Suspect]
     Indication: INSOMNIA
     Dosage: 1 TABLET OF 10 MLG.
     Route: 048
     Dates: start: 20090901, end: 20110106
  2. ZOLPIDEM [Concomitant]
     Indication: INSOMNIA
     Dosage: 1 TABLET  OF 10 MLG.
     Route: 048
     Dates: start: 20090901, end: 20110106

REACTIONS (7)
  - AMNESIA [None]
  - RESPIRATORY FAILURE [None]
  - RENAL FAILURE [None]
  - INSOMNIA [None]
  - ACCIDENTAL OVERDOSE [None]
  - HEPATIC FAILURE [None]
  - FOAMING AT MOUTH [None]
